FAERS Safety Report 24363292 (Version 1)
Quarter: 2024Q3

REPORT INFORMATION
  Report Type: Spontaneous
  Country: CN (occurrence: CN)
  Receive Date: 20240925
  Receipt Date: 20240925
  Transmission Date: 20241016
  Serious: Yes (Hospitalization)
  Sender: NOVARTIS
  Company Number: CN-002147023-NVSC2024CN190640

PATIENT
  Age: 61 Year
  Sex: Female
  Weight: 67 kg

DRUGS (2)
  1. OXCARBAZEPINE [Suspect]
     Active Substance: OXCARBAZEPINE
     Indication: Emotional disorder
     Dosage: 0.300 G, BID
     Route: 048
     Dates: start: 20240829, end: 20240831
  2. OXCARBAZEPINE [Suspect]
     Active Substance: OXCARBAZEPINE
     Dosage: 0.150 G, BID
     Route: 048
     Dates: start: 20240831, end: 20240922

REACTIONS (7)
  - Dizziness [Recovered/Resolved with Sequelae]
  - Fall [Unknown]
  - Pain in extremity [Unknown]
  - Limb discomfort [Unknown]
  - Erythema [Unknown]
  - Swelling [Unknown]
  - Fracture [Unknown]

NARRATIVE: CASE EVENT DATE: 20240921
